FAERS Safety Report 5233231-1 (Version None)
Quarter: 2007Q1

REPORT INFORMATION
  Report Type: 
  Country: None (occurrence: None)
  Receive Date: 20070207
  Receipt Date: 20070124
  Transmission Date: 20070707
  Serious: Yes (Hospitalization)
  Sender: FDA-Public Use
  Company Number: NLWYE316424JAN07

PATIENT
  Sex: Male

DRUGS (7)
  1. ENBREL [Suspect]
     Indication: PSORIASIS
     Dates: start: 20050318
  2. NOVAMET [Concomitant]
     Dosage: 160 IU - MORNING + 80 IU - EVENING
     Dates: end: 20061019
  3. DIOVAN [Concomitant]
     Dosage: 160 MG
     Dates: start: 20010101
  4. CYPRESS/EQUISETUM/GARLIC/HIPPOCASTANI SEMEN/MAGNESIUM THIOSULFATE/MIST [Concomitant]
     Dates: start: 20010101, end: 20061019
  5. ENALAPRIL MALEATE [Concomitant]
     Dates: start: 20010101
  6. METFORMIN HCL [Concomitant]
     Dates: start: 20010101
  7. TOLBUTAMIDE [Concomitant]
     Dates: start: 20061103

REACTIONS (16)
  - ABDOMINAL PAIN [None]
  - BLOOD ALCOHOL INCREASED [None]
  - DECREASED APPETITE [None]
  - DIABETES MELLITUS INADEQUATE CONTROL [None]
  - DIZZINESS [None]
  - DYSPNOEA [None]
  - ERUCTATION [None]
  - FEELING DRUNK [None]
  - GAMMA-GLUTAMYLTRANSFERASE INCREASED [None]
  - HEPATIC STEATOSIS [None]
  - HEPATOTOXICITY [None]
  - MALAISE [None]
  - NAUSEA [None]
  - NOCTURIA [None]
  - OEDEMA [None]
  - ORTHOPNOEA [None]
